FAERS Safety Report 9365834 (Version 1)
Quarter: 2013Q2

REPORT INFORMATION
  Report Type: Report from Study
  Country: US (occurrence: US)
  Receive Date: 20130625
  Receipt Date: 20130625
  Transmission Date: 20140414
  Serious: Yes (Hospitalization, Other)
  Sender: FDA-Public Use
  Company Number: PHEH2012US025880

PATIENT
  Sex: Female

DRUGS (3)
  1. GLEEVEC [Suspect]
     Indication: GASTRIC CANCER
     Dosage: 300 MG, DAILY
     Route: 048
     Dates: start: 20110815
  2. GLEEVEC [Suspect]
     Dosage: 400 MG, UNK
  3. GLEEVEC [Suspect]
     Dosage: 300 MG, UNK

REACTIONS (17)
  - Gastric cancer [Unknown]
  - Neoplasm recurrence [Unknown]
  - Hepatic neoplasm [Unknown]
  - Ankle fracture [Unknown]
  - Osteoporosis [Unknown]
  - Dizziness [Unknown]
  - Loss of consciousness [Unknown]
  - Malaise [Unknown]
  - Nausea [Unknown]
  - Diarrhoea [Unknown]
  - Vomiting [Unknown]
  - Vision blurred [Unknown]
  - Muscle spasms [Unknown]
  - Spinal pain [Unknown]
  - Fatigue [Unknown]
  - Pain in extremity [Unknown]
  - Generalised oedema [Recovered/Resolved]
